FAERS Safety Report 6532914-0 (Version None)
Quarter: 2010Q1

REPORT INFORMATION
  Report Type: 
  Country: None (occurrence: None)
  Receive Date: 20100111
  Receipt Date: 20100106
  Transmission Date: 20100710
  Serious: Yes (Death)
  Sender: FDA-Public Use
  Company Number: FR-ROCHE-674126

PATIENT
  Sex: Male

DRUGS (6)
  1. CAPECITABINE [Suspect]
     Indication: GASTRIC CANCER
     Dosage: CYCLE 1, TOTAL DOSE: 159600 MG
     Route: 065
     Dates: start: 20080529
  2. CAPECITABINE [Suspect]
     Dosage: CYCLE 2, TOTAL DOSE: 95200 MG
     Route: 065
     Dates: start: 20080813, end: 20080924
  3. EPIRUBICIN HYDROCHLORIDE [Suspect]
     Indication: GASTRIC CANCER
     Dosage: CYCLE 1, TOTAL DOSE: 300MG
     Route: 065
     Dates: start: 20080529
  4. EPIRUBICIN HYDROCHLORIDE [Suspect]
     Dosage: CYCLE 2, TOTAL DOSE: 200MG
     Route: 065
     Dates: start: 20080813, end: 20080924
  5. CISPLATIN [Suspect]
     Indication: GASTRIC CANCER
     Dosage: CYCLE 1, TOTAL DOSE: 360MG
     Route: 065
     Dates: start: 20080529
  6. CISPLATIN [Suspect]
     Dosage: CYCLE 2, TOTAL DOSE: 240MG
     Route: 065
     Dates: start: 20080818, end: 20080924

REACTIONS (1)
  - ISCHAEMIC STROKE [None]
